FAERS Safety Report 19408856 (Version 1)
Quarter: 2021Q2

REPORT INFORMATION
  Report Type: Spontaneous
  Country: DE (occurrence: DE)
  Receive Date: 20210613
  Receipt Date: 20210613
  Transmission Date: 20210717
  Serious: Yes (Hospitalization, Other)
  Sender: FDA-Public Use
  Company Number: DE-TEVA-2021-DE-1920538

PATIENT
  Age: 80 Year
  Sex: Male

DRUGS (8)
  1. METFORMIN [Suspect]
     Active Substance: METFORMIN HYDROCHLORIDE
     Dosage: 1000 MILLIGRAM DAILY;  1?0?1?0,
     Route: 048
  2. CANDESARTAN. [Suspect]
     Active Substance: CANDESARTAN
     Dosage: 2 DOSAGE FORMS DAILY; 16 MG, 2?0?0?0,
     Route: 048
  3. SIMVASTATIN. [Concomitant]
     Active Substance: SIMVASTATIN
     Dosage: 20 MILLIGRAM DAILY;   0?0?1?0,
     Route: 048
  4. GLYCOPYRRONIUMBROMID/INDACATEROL [Concomitant]
     Dosage: 1 DOSAGE FORMS DAILY; 43 | 85 UG, 1?0?0?0, CAPSULES FOR INHALATION
     Route: 055
  5. BISOPROLOL [Concomitant]
     Active Substance: BISOPROLOL
     Dosage: 5 MILLIGRAM DAILY;   1?0?0?0,
     Route: 048
  6. RIVAROXABAN [Suspect]
     Active Substance: RIVAROXABAN
     Dosage: 1.5 DOSAGE FORMS DAILY; 2.5 MG, 1.5?0?0?0,
     Route: 048
  7. TORASEMID [Suspect]
     Active Substance: TORSEMIDE
     Dosage: 50 MILLIGRAM DAILY;   1?0?0?0,
     Route: 048
  8. SALBUTAMOL 1APHARMA 0,1MG DRUCKGASINHALATION, SUSPENSION [Concomitant]
     Dosage: 1 STROKE, IF NECESSARY, METERED DOSE INHALER
     Route: 055

REACTIONS (3)
  - Haematuria [Unknown]
  - Acute kidney injury [Unknown]
  - Nephrogenic anaemia [Unknown]

NARRATIVE: CASE EVENT DATE: 20200917
